FAERS Safety Report 24387562 (Version 1)
Quarter: 2024Q4

REPORT INFORMATION
  Report Type: Spontaneous
  Country: US (occurrence: None)
  Receive Date: 20241001
  Receipt Date: 20241001
  Transmission Date: 20250114
  Serious: Yes (Hospitalization)
  Sender: Public
  Company Number: None

PATIENT
  Age: 77 Year
  Sex: Male
  Weight: 83 kg

DRUGS (2)
  1. APIXABAN [Suspect]
     Active Substance: APIXABAN
     Dosage: FREQUENCY : TWICE A DAY;?
     Route: 048
  2. ASPIRIN [Suspect]
     Active Substance: ASPIRIN

REACTIONS (6)
  - Duodenal ulcer haemorrhage [None]
  - Haemorrhoids [None]
  - Therapy interrupted [None]
  - Cardiac failure [None]
  - Hypervolaemia [None]
  - Cardiac arrest [None]

NARRATIVE: CASE EVENT DATE: 20231204
